FAERS Safety Report 9474134 (Version 1)
Quarter: 2013Q3

REPORT INFORMATION
  Report Type: Spontaneous
  Country: US (occurrence: None)
  Receive Date: 20130820
  Receipt Date: 20130820
  Transmission Date: 20140515
  Serious: Yes (Other)
  Sender: FDA-Public Use
  Company Number: 2013P1017310

PATIENT
  Sex: 0

DRUGS (3)
  1. IRINOTECAN [Suspect]
     Indication: COLORECTAL CANCER
     Route: 042
  2. SORAFENIB [Suspect]
     Indication: COLORECTAL CANCER
     Route: 048
  3. CETUXIMAX [Concomitant]

REACTIONS (2)
  - Diarrhoea [None]
  - Drug interaction [None]
